FAERS Safety Report 19770501 (Version 3)
Quarter: 2021Q4

REPORT INFORMATION
  Report Type: Report from Study
  Country: None (occurrence: US)
  Receive Date: 20210831
  Receipt Date: 20211026
  Transmission Date: 20220303
  Serious: Yes (Hospitalization)
  Sender: FDA-Public Use
  Company Number: US-ABBVIE-21K-163-4061514-00

PATIENT
  Sex: Male
  Weight: 64.01 kg

DRUGS (1)
  1. SKYRIZI [Suspect]
     Active Substance: RISANKIZUMAB-RZAA
     Indication: Psoriasis
     Route: 058

REACTIONS (4)
  - Liver disorder [Recovering/Resolving]
  - Blood sodium decreased [Unknown]
  - Weight decreased [Unknown]
  - Confusional state [Unknown]
